FAERS Safety Report 6191680-1 (Version None)
Quarter: 2009Q2

REPORT INFORMATION
  Report Type: 
  Country: None (occurrence: None)
  Receive Date: 20090515
  Receipt Date: 20090513
  Transmission Date: 20091009
  Serious: Yes (Other)
  Sender: FDA-Public Use
  Company Number: PHEH2009US04445

PATIENT
  Sex: Male
  Weight: 89.796 kg

DRUGS (1)
  1. DIOVAN [Suspect]
     Dosage: 80 MG, QD
     Dates: start: 20000101

REACTIONS (4)
  - CEREBROVASCULAR ACCIDENT [None]
  - DRUG INEFFECTIVE [None]
  - HYPERTENSION [None]
  - MONOPLEGIA [None]
